FAERS Safety Report 16763457 (Version 1)
Quarter: 2019Q3

REPORT INFORMATION
  Report Type: Spontaneous
  Country: GB (occurrence: GB)
  Receive Date: 20190902
  Receipt Date: 20190902
  Transmission Date: 20191005
  Serious: Yes (Other)
  Sender: FDA-Public Use
  Company Number: GB-TEVA-2019-GB-1099898

PATIENT
  Age: 49 Year
  Sex: Female
  Weight: 103 kg

DRUGS (7)
  1. FEMARA [Concomitant]
     Active Substance: LETROZOLE
     Dates: start: 20190403
  2. PREGABALIN. [Concomitant]
     Active Substance: PREGABALIN
     Dates: start: 20180625
  3. LETROZOLE. [Concomitant]
     Active Substance: LETROZOLE
     Dates: start: 20190403, end: 20190403
  4. NITROFURANTOIN. [Suspect]
     Active Substance: NITROFURANTOIN
     Dates: start: 20190528
  5. CODEINE PHOSPHATE [Concomitant]
     Active Substance: CODEINE PHOSPHATE
     Dosage: ONE OR TWO  TO BE TAKEN UP TO FOUR TIMES A DAY
     Dates: start: 20180102
  6. FLUOXETINE [Concomitant]
     Active Substance: FLUOXETINE HYDROCHLORIDE
     Dates: start: 20190403
  7. TRIMETHOPRIM. [Concomitant]
     Active Substance: TRIMETHOPRIM
     Dates: start: 20190603

REACTIONS (3)
  - Cough [Unknown]
  - Body temperature abnormal [Recovering/Resolving]
  - Malaise [Unknown]

NARRATIVE: CASE EVENT DATE: 20190603
